FAERS Safety Report 20472158 (Version 2)
Quarter: 2022Q4

REPORT INFORMATION
  Report Type: Spontaneous
  Country: US (occurrence: US)
  Receive Date: 20220214
  Receipt Date: 20221202
  Transmission Date: 20230113
  Serious: Yes (Other)
  Sender: FDA-Public Use
  Company Number: US-GILEAD-2022-0569323

PATIENT
  Sex: Male

DRUGS (42)
  1. VIREAD [Suspect]
     Active Substance: TENOFOVIR DISOPROXIL FUMARATE
     Indication: HIV infection
     Dosage: UNK
     Route: 048
     Dates: start: 2001
  2. TRUVADA [Suspect]
     Active Substance: EMTRICITABINE\TENOFOVIR DISOPROXIL FUMARATE
     Indication: HIV infection
     Dosage: UNK
     Route: 048
     Dates: start: 2018
  3. TRUVADA [Suspect]
     Active Substance: EMTRICITABINE\TENOFOVIR DISOPROXIL FUMARATE
     Dosage: UNK
     Route: 048
     Dates: end: 201709
  4. DESCOVY [Concomitant]
     Active Substance: EMTRICITABINE\TENOFOVIR ALAFENAMIDE FUMARATE
  5. ISENTRESS [Concomitant]
     Active Substance: RALTEGRAVIR POTASSIUM
  6. KALETRA [Concomitant]
     Active Substance: LOPINAVIR\RITONAVIR
  7. NORVIR [Concomitant]
     Active Substance: RITONAVIR
  8. PREZCOBIX [Concomitant]
     Active Substance: COBICISTAT\DARUNAVIR ETHANOLATE
  9. PREZISTA [Concomitant]
     Active Substance: DARUNAVIR ETHANOLATE
  10. SELZENTRY [Concomitant]
     Active Substance: MARAVIROC
  11. SYMTUZA [Concomitant]
     Active Substance: COBICISTAT\DARUNAVIR\EMTRICITABINE\TENOFOVIR ALAFENAMIDE
  12. VENLAFAXINE [Concomitant]
     Active Substance: VENLAFAXINE HYDROCHLORIDE
  13. AMLODIPINE [Concomitant]
     Active Substance: AMLODIPINE BESYLATE
  14. LANSOPRAZOLE [Concomitant]
     Active Substance: LANSOPRAZOLE
  15. FEXOFENADINE [Concomitant]
     Active Substance: FEXOFENADINE HYDROCHLORIDE
  16. ASPIRIN [Concomitant]
     Active Substance: ASPIRIN
  17. ATORVASTATIN [Concomitant]
     Active Substance: ATORVASTATIN
  18. FLUTICASONE [Concomitant]
     Active Substance: FLUTICASONE
  19. BUPROPION [Concomitant]
     Active Substance: BUPROPION
  20. AZITHROMYCIN [Concomitant]
     Active Substance: AZITHROMYCIN
  21. PREDNISONE [Concomitant]
     Active Substance: PREDNISONE
  22. PRAVASTATIN [Concomitant]
     Active Substance: PRAVASTATIN
  23. DOXEPIN [Concomitant]
     Active Substance: DOXEPIN
  24. HYDROXYZINE [Concomitant]
     Active Substance: HYDROXYZINE HYDROCHLORIDE
  25. TERBINAFINE [Concomitant]
     Active Substance: TERBINAFINE
  26. LOSARTAN [Concomitant]
     Active Substance: LOSARTAN
  27. HYDROCHLOROTHIAZIDE [Concomitant]
     Active Substance: HYDROCHLOROTHIAZIDE
  28. LISINOPRIL [Concomitant]
     Active Substance: LISINOPRIL
  29. LORAZEPAM [Concomitant]
     Active Substance: LORAZEPAM
  30. METOPROLOL [Concomitant]
     Active Substance: METOPROLOL
  31. MONTELUKAST [Concomitant]
     Active Substance: MONTELUKAST SODIUM
  32. NAPROXEN [Concomitant]
     Active Substance: NAPROXEN
  33. VICODIN [Concomitant]
     Active Substance: ACETAMINOPHEN\HYDROCODONE BITARTRATE
  34. CARVEDILOL [Concomitant]
     Active Substance: CARVEDILOL
  35. CEPHALEXIN [Concomitant]
     Active Substance: CEPHALEXIN
  36. SILDENAFIL [Concomitant]
     Active Substance: SILDENAFIL
  37. TRAMADOL [Concomitant]
     Active Substance: TRAMADOL
  38. VANCOMYCIN [Concomitant]
     Active Substance: VANCOMYCIN
  39. ZOSYN [Concomitant]
     Active Substance: PIPERACILLIN SODIUM\TAZOBACTAM SODIUM
  40. ZOLOFT [Concomitant]
     Active Substance: SERTRALINE HYDROCHLORIDE
  41. EFFEXOR [Concomitant]
     Active Substance: VENLAFAXINE HYDROCHLORIDE
  42. ATENOLOL [Concomitant]
     Active Substance: ATENOLOL

REACTIONS (8)
  - Multiple fractures [Unknown]
  - Bone demineralisation [Not Recovered/Not Resolved]
  - Pain [Not Recovered/Not Resolved]
  - Emotional distress [Not Recovered/Not Resolved]
  - Anxiety [Not Recovered/Not Resolved]
  - Anhedonia [Not Recovered/Not Resolved]
  - Dysstasia [Not Recovered/Not Resolved]
  - General physical health deterioration [Not Recovered/Not Resolved]

NARRATIVE: CASE EVENT DATE: 20190101
